FAERS Safety Report 9181702 (Version 1)
Quarter: 2013Q1

REPORT INFORMATION
  Report Type: Other
  Country: JP (occurrence: JP)
  Receive Date: 20130322
  Receipt Date: 20130322
  Transmission Date: 20140127
  Serious: Yes (Death, Other)
  Sender: FDA-Public Use
  Company Number: JP-BRISTOL-MYERS SQUIBB COMPANY-18698126

PATIENT
  Age: 74 Year
  Sex: Male

DRUGS (2)
  1. CARBOPLATIN [Suspect]
  2. PEMETREXED DISODIUM [Suspect]

REACTIONS (3)
  - Malignant neoplasm progression [Fatal]
  - Gastrointestinal toxicity [Unknown]
  - Psychiatric symptom [Unknown]
